FAERS Safety Report 25477119 (Version 4)
Quarter: 2025Q4

REPORT INFORMATION
  Report Type: Spontaneous
  Country: EU (occurrence: EU)
  Receive Date: 20250625
  Receipt Date: 20251114
  Transmission Date: 20260117
  Serious: Yes (Hospitalization, Other)
  Sender: AUROBINDO
  Company Number: EU-ASTRAZENECA-202505GLO008757FR

PATIENT
  Age: 58 Year
  Sex: Male
  Weight: 74 kg

DRUGS (18)
  1. CARBOPLATIN [Suspect]
     Active Substance: CARBOPLATIN
     Indication: Non-small cell lung cancer
     Dosage: 5 AUC
     Route: 042
     Dates: start: 20230904, end: 20231106
  2. CARBOPLATIN [Suspect]
     Active Substance: CARBOPLATIN
     Indication: Non-small cell lung cancer metastatic
  3. PEMETREXED [Suspect]
     Active Substance: PEMETREXED
     Indication: Non-small cell lung cancer
     Dosage: 500 MG/M2, ONCE EVERY 3 WK
     Route: 042
     Dates: start: 20230904, end: 20231204
  4. PEMETREXED [Suspect]
     Active Substance: PEMETREXED
     Indication: Non-small cell lung cancer metastatic
  5. PEMBROLIZUMAB [Suspect]
     Active Substance: PEMBROLIZUMAB
     Indication: Non-small cell lung cancer
     Dosage: 200 MG, ONCE EVERY 3 WK
     Route: 042
     Dates: start: 20230904, end: 20250114
  6. PEMBROLIZUMAB [Suspect]
     Active Substance: PEMBROLIZUMAB
     Indication: Non-small cell lung cancer metastatic
  7. CISPLATIN [Suspect]
     Active Substance: CISPLATIN
     Indication: Breast cancer
     Dosage: 75 MILLIGRAM/SQ. METER (75 MG/M2, ONCE EVERY 3 WK)
     Route: 065
  8. Calcidose [Concomitant]
     Indication: Prophylaxis
     Dosage: 500 MILLIGRAM, ONCE A DAY
     Route: 048
     Dates: start: 20241026
  9. Calcidose [Concomitant]
     Indication: Premedication
     Dosage: 800 INTERNATIONAL UNIT, ONCE A DAY
     Route: 065
     Dates: start: 20241026
  10. AMLODIPINE [Concomitant]
     Active Substance: AMLODIPINE BESYLATE
     Indication: Hypertension
     Dosage: UNK
     Route: 048
     Dates: start: 20240206
  11. DENOSUMAB [Concomitant]
     Active Substance: DENOSUMAB
     Indication: Osteogenesis imperfecta
     Dosage: 3 MILLIGRAM
     Route: 058
     Dates: start: 20240913
  12. PREDNISONE [Concomitant]
     Active Substance: PREDNISONE
     Indication: Autoimmune hepatitis
     Dosage: UNK
     Route: 048
     Dates: start: 20250320, end: 20250326
  13. PREDNISONE [Concomitant]
     Active Substance: PREDNISONE
     Dosage: 20 MILLIGRAM, ONCE A DAY
     Route: 048
     Dates: start: 20250327, end: 20250402
  14. PREDNISONE [Concomitant]
     Active Substance: PREDNISONE
     Dosage: 10 MILLIGRAM, ONCE A DAY
     Route: 048
     Dates: start: 20250404, end: 20250409
  15. PANTOPRAZOLE [Concomitant]
     Active Substance: PANTOPRAZOLE
     Indication: Nausea
     Dosage: 20 MILLIGRAM, ONCE A DAY
     Route: 065
     Dates: start: 20250204
  16. URAPIDIL [Concomitant]
     Active Substance: URAPIDIL
     Indication: Hypertension
     Dosage: 60 MILLIGRAM, ONCE A DAY
     Route: 048
     Dates: start: 20240206
  17. URSODIOL [Concomitant]
     Active Substance: URSODIOL
     Indication: Product used for unknown indication
     Dosage: 500 MILLIGRAM, ONCE A DAY
     Route: 048
     Dates: start: 20250303
  18. LORMETAZEPAM [Concomitant]
     Active Substance: LORMETAZEPAM
     Indication: Insomnia
     Dosage: 1 MILLIGRAM, ONCE A DAY
     Route: 048
     Dates: start: 20250209

REACTIONS (4)
  - Interstitial lung disease [Not Recovered/Not Resolved]
  - Pneumonia staphylococcal [Not Recovered/Not Resolved]
  - Pneumocystis jirovecii pneumonia [Recovered/Resolved]
  - Lung disorder [Not Recovered/Not Resolved]

NARRATIVE: CASE EVENT DATE: 20250422
